FAERS Safety Report 9758671 (Version 1)
Quarter: 2013Q4

REPORT INFORMATION
  Report Type: Spontaneous
  Country: US (occurrence: None)
  Receive Date: 20131216
  Receipt Date: 20131216
  Transmission Date: 20140711
  Serious: Yes (Other)
  Sender: FDA-Public Use
  Company Number: RB-45233-2012

PATIENT
  Age: 22 Year
  Sex: Male

DRUGS (1)
  1. SUBOXONE [Suspect]
     Indication: DRUG WITHDRAWAL SYNDROME
     Dosage: (SUBOXONE FILM; DOSING DETAILS UNKNOWN SUBLINGUAL), (SUBOXONE FILM; DOSING DETAILS UNKNOWN SUBLINGUA

REACTIONS (5)
  - Hypersensitivity [None]
  - Heart rate increased [None]
  - Anxiety [None]
  - Dyspnoea [None]
  - Rash generalised [None]
